FAERS Safety Report 8508349-8 (Version None)
Quarter: 2012Q3

REPORT INFORMATION
  Report Type: 
  Country: None (occurrence: None)
  Receive Date: 20120713
  Receipt Date: 20120705
  Transmission Date: 20120928
  Serious: Yes (Other)
  Sender: FDA-Public Use
  Company Number: PHHY2009CA38757

PATIENT
  Sex: Female

DRUGS (2)
  1. SANDOSTATIN LAR [Suspect]
     Dosage: 30 MG, EVERY 3 WEEKS
     Route: 030
  2. SANDOSTATIN LAR [Suspect]
     Indication: ACROMEGALY
     Dosage: 20 MG, EVERY 4 WEEKS
     Route: 030
     Dates: start: 19921001

REACTIONS (12)
  - GASTROINTESTINAL DISORDER [None]
  - DIZZINESS [None]
  - HAEMATOCHEZIA [None]
  - DISCOMFORT [None]
  - MALAISE [None]
  - FATIGUE [None]
  - DIARRHOEA [None]
  - ARTHRALGIA [None]
  - ABDOMINAL PAIN [None]
  - HEADACHE [None]
  - MUSCULOSKELETAL STIFFNESS [None]
  - ABDOMINAL DISTENSION [None]
